FAERS Safety Report 15232856 (Version 1)
Quarter: 2018Q3

REPORT INFORMATION
  Report Type: Spontaneous
  Country: US (occurrence: US)
  Receive Date: 20180802
  Receipt Date: 20180802
  Transmission Date: 20181010
  Serious: No
  Sender: FDA-Public Use
  Company Number: US-ASTRAZENECA-2018SE87079

PATIENT
  Sex: Female

DRUGS (1)
  1. SYMBICORT [Suspect]
     Active Substance: BUDESONIDE\FORMOTEROL FUMARATE DIHYDRATE
     Dosage: 2X A DAY
     Route: 055

REACTIONS (5)
  - Sleep disorder [Unknown]
  - Nightmare [Unknown]
  - Asthma [Unknown]
  - Rash pruritic [Unknown]
  - Muscle spasms [Unknown]
